FAERS Safety Report 14347819 (Version 4)
Quarter: 2019Q3

REPORT INFORMATION
  Report Type: Spontaneous
  Country: FR (occurrence: FR)
  Receive Date: 20180103
  Receipt Date: 20190716
  Transmission Date: 20191004
  Serious: Yes (Other)
  Sender: FDA-Public Use
  Company Number: FR-INDIVIOR LIMITED-INDV-107207-2017

PATIENT
  Age: 49 Year
  Sex: Male

DRUGS (2)
  1. SUBUTEX [Suspect]
     Active Substance: BUPRENORPHINE HYDROCHLORIDE
     Indication: PRODUCT USED FOR UNKNOWN INDICATION
     Dosage: UNK
     Route: 042
     Dates: start: 1995
  2. SUBOXONE [Suspect]
     Active Substance: BUPRENORPHINE HYDROCHLORIDE\NALOXONE HYDROCHLORIDE
     Indication: PRODUCT USED FOR UNKNOWN INDICATION
     Dosage: UNK
     Route: 042
     Dates: start: 2019

REACTIONS (6)
  - Drug dependence [Recovering/Resolving]
  - Intentional product use issue [Unknown]
  - Chronic hepatitis C [Recovering/Resolving]
  - Substance use disorder [Recovering/Resolving]
  - Intentional product misuse [Recovered/Resolved]
  - Injection site pain [Recovered/Resolved]

NARRATIVE: CASE EVENT DATE: 1988
